FAERS Safety Report 18680842 (Version 2)
Quarter: 2021Q4

REPORT INFORMATION
  Report Type: Report from Study
  Country: US (occurrence: US)
  Receive Date: 20201229
  Receipt Date: 20211229
  Transmission Date: 20220303
  Serious: No
  Sender: FDA-Public Use
  Company Number: US-CLOVIS ONCOLOGY-CLO-2020-001618

PATIENT
  Sex: Female

DRUGS (2)
  1. RUBRACA [Suspect]
     Active Substance: RUCAPARIB CAMSYLATE
     Indication: Ovarian cancer
     Dosage: 600 MG, BID
     Route: 048
     Dates: start: 20200829, end: 20210121
  2. RUBRACA [Suspect]
     Active Substance: RUCAPARIB CAMSYLATE
     Dosage: 300 MILLIGRAM, QD
     Route: 048
     Dates: start: 20200827

REACTIONS (6)
  - Irritability [Unknown]
  - Tumour marker increased [Unknown]
  - Fatigue [Not Recovered/Not Resolved]
  - Photosensitivity reaction [Unknown]
  - Product dose omission issue [Unknown]
  - Therapy partial responder [Unknown]

NARRATIVE: CASE EVENT DATE: 20200101
